FAERS Safety Report 12228634 (Version 1)
Quarter: 2016Q2

REPORT INFORMATION
  Report Type: Report from Study
  Country: US (occurrence: US)
  Receive Date: 20160401
  Receipt Date: 20160401
  Transmission Date: 20160815
  Serious: Yes (Other)
  Sender: FDA-Public Use
  Company Number: US-BAYER-2016-036857

PATIENT
  Age: 62 Year
  Sex: Female

DRUGS (1)
  1. STIVARGA [Suspect]
     Active Substance: REGORAFENIB
     Indication: COLORECTAL CANCER METASTATIC
     Dosage: 120 MG, QD
     Route: 048
     Dates: start: 20160222, end: 20160307

REACTIONS (25)
  - Pain in extremity [None]
  - Skin exfoliation [Not Recovered/Not Resolved]
  - Pyrexia [Recovered/Resolved]
  - C-reactive protein increased [None]
  - Abdominal pain [None]
  - Dysphonia [None]
  - Rash generalised [Recovered/Resolved]
  - Headache [Not Recovered/Not Resolved]
  - Dry skin [None]
  - Erythema [None]
  - Headache [None]
  - Pain [Recovered/Resolved]
  - Decreased appetite [Not Recovered/Not Resolved]
  - Blood calcium decreased [None]
  - Blood sodium decreased [None]
  - Blood pressure increased [Not Recovered/Not Resolved]
  - Diarrhoea [None]
  - Neuropathy peripheral [None]
  - Stomatitis [Not Recovered/Not Resolved]
  - Chills [Recovered/Resolved]
  - Blister [None]
  - Nausea [None]
  - Dysphonia [None]
  - Fatigue [Not Recovered/Not Resolved]
  - Tremor [None]

NARRATIVE: CASE EVENT DATE: 201602
